FAERS Safety Report 9558578 (Version 2)
Quarter: 2013Q4

REPORT INFORMATION
  Report Type: Spontaneous
  Country: US (occurrence: US)
  Receive Date: 20130926
  Receipt Date: 20131010
  Transmission Date: 20140711
  Serious: Yes (Other)
  Sender: FDA-Public Use
  Company Number: US-GILEAD-2013-0083919

PATIENT
  Age: 55 Year
  Sex: Male

DRUGS (4)
  1. VIREAD [Suspect]
     Indication: CHRONIC HEPATITIS B
  2. ADEFOVIR DIPIVOXIL [Concomitant]
     Indication: CHRONIC HEPATITIS B
  3. 3TC [Concomitant]
     Indication: CHRONIC HEPATITIS B
  4. ENTECAVIR [Concomitant]
     Indication: CHRONIC HEPATITIS B

REACTIONS (4)
  - Hepatic fibrosis [Unknown]
  - Drug ineffective [Unknown]
  - Hepatitis B e antigen positive [Unknown]
  - Liver function test abnormal [Unknown]
